FAERS Safety Report 9745301 (Version 1)
Quarter: 2013Q4

REPORT INFORMATION
  Report Type: Spontaneous
  Country: FR (occurrence: FR)
  Receive Date: 20131211
  Receipt Date: 20131211
  Transmission Date: 20140711
  Serious: Yes (Other)
  Sender: FDA-Public Use
  Company Number: FR-JNJFOC-20131203406

PATIENT
  Age: 32 Year
  Sex: Female

DRUGS (1)
  1. SIMPONI [Suspect]
     Indication: SPONDYLOARTHROPATHY
     Route: 058

REACTIONS (4)
  - Lymphadenopathy [Unknown]
  - Night sweats [Unknown]
  - Pyrexia [Unknown]
  - Bronchitis [Unknown]
